FAERS Safety Report 4452336-6 (Version None)
Quarter: 2004Q3

REPORT INFORMATION
  Report Type: 
  Country: None (occurrence: None)
  Receive Date: 20040915
  Receipt Date: 20040827
  Transmission Date: 20050211
  Serious: Yes (Hospitalization)
  Sender: FDA-Public Use
  Company Number: JP_040202611

PATIENT
  Age: 53 Year
  Sex: Male
  Weight: 71 kg

DRUGS (1)
  1. GEMZAR [Suspect]
     Indication: PANCREATIC CARCINOMA
     Dosage: 1000 MG OTHER
     Dates: start: 20031119

REACTIONS (1)
  - INTERSTITIAL LUNG DISEASE [None]
